FAERS Safety Report 18386116 (Version 1)
Quarter: 2020Q4

REPORT INFORMATION
  Report Type: Spontaneous
  Country: US (occurrence: US)
  Receive Date: 20201015
  Receipt Date: 20201015
  Transmission Date: 20210114
  Serious: Yes (Death, Life-Threatening, Hospitalization, Other)
  Sender: FDA-Public Use
  Company Number: US-ALKEM LABORATORIES LIMITED-US-ALKEM-2020-06526

PATIENT
  Age: 76 Year
  Sex: Male

DRUGS (8)
  1. METHYLPREDNISOLONE. [Suspect]
     Active Substance: METHYLPREDNISOLONE
     Indication: GIANT CELL MYOCARDITIS
     Dosage: 1 GRAM, QD
     Route: 042
  2. ANTI-THYMOCYTE GLOBULIN (RABBIT) NOS [Suspect]
     Active Substance: LAPINE T-LYMPHOCYTE IMMUNE GLOBULIN
     Indication: GIANT CELL MYOCARDITIS
     Dosage: 1 MILLIGRAM/KILOGRAM (1 TOTAL)
     Route: 065
  3. CICLOSPORIN [Suspect]
     Active Substance: CYCLOSPORINE
     Indication: GIANT CELL MYOCARDITIS
     Dosage: 75 MILLIGRAM (EVERY 12 HOUR)
     Route: 065
  4. LIDOCAINE. [Concomitant]
     Active Substance: LIDOCAINE
     Indication: VENTRICULAR TACHYCARDIA
     Dosage: UNK
     Route: 065
  5. MYCOPHENOLATE MOFETIL. [Suspect]
     Active Substance: MYCOPHENOLATE MOFETIL
     Indication: GIANT CELL MYOCARDITIS
     Dosage: 500 MILLIGRAM (EVERY 12 HOUR)
     Route: 065
  6. MEXILETINE [Concomitant]
     Active Substance: MEXILETINE
     Indication: VENTRICULAR TACHYCARDIA
     Dosage: UNK
     Route: 065
  7. AZATHIOPRINE. [Suspect]
     Active Substance: AZATHIOPRINE
     Indication: GIANT CELL MYOCARDITIS
     Dosage: 50 MILLIGRAM, QD
     Route: 065
  8. CICLOSPORIN [Suspect]
     Active Substance: CYCLOSPORINE
     Dosage: 50 MILLIGRAM (EVERY 12 HOUR)
     Route: 065

REACTIONS (8)
  - Clostridium difficile colitis [Fatal]
  - Tracheitis [Unknown]
  - Staphylococcal sepsis [Fatal]
  - Device related infection [Fatal]
  - Cytomegalovirus infection reactivation [Recovering/Resolving]
  - Transaminases increased [Unknown]
  - Cardiac failure acute [Fatal]
  - Septic shock [Fatal]
